FAERS Safety Report 7361757-3 (Version None)
Quarter: 2011Q1

REPORT INFORMATION
  Report Type: 
  Country: None (occurrence: None)
  Receive Date: 20110318
  Receipt Date: 20110311
  Transmission Date: 20110831
  Serious: Yes (Hospitalization)
  Sender: FDA-Public Use
  Company Number: FR-MERCK-1103FRA00086

PATIENT
  Age: 65 Year
  Sex: Female
  Weight: 110 kg

DRUGS (19)
  1. ENOXAPARIN SODIUM [Concomitant]
     Route: 065
  2. ACEPROMETAZINE MALEATE AND MEPROBAMATE [Concomitant]
     Route: 065
  3. PERINDOPRIL ARGININE [Concomitant]
     Route: 065
  4. PRISTINAMYCIN [Concomitant]
     Indication: DIABETIC FOOT
     Route: 065
     Dates: start: 20101012, end: 20101014
  5. JANUMET [Suspect]
     Indication: DIABETES MELLITUS
     Route: 048
     Dates: start: 20101014
  6. LEVOMEPROMAZINE [Concomitant]
     Route: 065
  7. DEXAMETHASONE ACETATE [Concomitant]
     Route: 065
     Dates: start: 20101019, end: 20101021
  8. PRAVASTATIN SODIUM [Concomitant]
     Route: 065
  9. ACETAMINOPHEN [Concomitant]
     Route: 065
  10. NEFOPAM HYDROCHLORIDE [Concomitant]
     Indication: PAIN
     Route: 065
  11. CLORAZEPATE DIPOTASSIUM [Concomitant]
     Route: 065
  12. SACCHAROMYCES BOULARDII [Concomitant]
     Route: 065
  13. CLINDAMYCIN HYDROCHLORIDE [Suspect]
     Indication: DIABETIC FOOT
     Route: 048
     Dates: start: 20101014, end: 20101021
  14. TRAMADOL HYDROCHLORIDE [Suspect]
     Route: 048
     Dates: start: 20101019
  15. LEVOTHYROXINE SODIUM [Concomitant]
     Route: 065
  16. CIPROFLOXACIN HYDROCHLORIDE [Suspect]
     Indication: DIABETIC FOOT
     Route: 048
     Dates: start: 20101011
  17. OXACILLIN SODIUM [Concomitant]
     Route: 065
     Dates: start: 20101008, end: 20101011
  18. ESCITALOPRAM OXALATE [Concomitant]
     Indication: DIABETIC FOOT
     Route: 048
  19. GLIMEPIRIDE [Suspect]
     Indication: DIABETES MELLITUS
     Route: 048
     Dates: start: 20101014

REACTIONS (3)
  - OVERDOSE [None]
  - PRURITUS [None]
  - RASH PAPULAR [None]
